FAERS Safety Report 8954008 (Version 1)
Quarter: 2012Q4

REPORT INFORMATION
  Report Type: 
  Country: IT (occurrence: IT)
  Receive Date: 20121206
  Receipt Date: 20121206
  Transmission Date: 20130627
  Serious: Yes (Other)
  Sender: FDA-Public Use
  Company Number: IT-WATSON-2012-21191

PATIENT
  Age: 51 Year
  Sex: Male

DRUGS (4)
  1. DEXAMETHASONE [Suspect]
     Indication: LEUKAEMIA PLASMACYTIC
     Dosage: 40 mg daily, administered on days 1, 8, 15 and 22 of a 28-day therapy cycle
     Route: 048
  2. SULFAMETHOXAZOLE/TRIMETHOPRIM [Suspect]
     Indication: LEUKAEMIA PLASMACYTIC
     Route: 065
  3. ALLOPURINOL (UNKNOWN) [Suspect]
     Indication: LEUKAEMIA PLASMACYTIC
     Route: 065
  4. REVLIMID [Suspect]
     Indication: LEUKAEMIA PLASMACYTIC
     Dosage: 25 mg, daily
     Route: 048

REACTIONS (1)
  - Stevens-Johnson syndrome [Recovering/Resolving]
